FAERS Safety Report 4316183-8 (Version None)
Quarter: 2004Q1

REPORT INFORMATION
  Report Type: 
  Country: None (occurrence: None)
  Receive Date: 20040312
  Receipt Date: 20020102
  Transmission Date: 20041129
  Serious: Yes (Other)
  Sender: FDA-Public Use
  Company Number: US-GLAXOSMITHKLINE-A0172066A

PATIENT
  Age: 56 Year
  Sex: Female
  Weight: 66.4 kg

DRUGS (3)
  1. LOTRONEX [Suspect]
     Indication: DIARRHOEA
     Route: 048
     Dates: start: 20001220, end: 20001226
  2. ASPIRIN [Concomitant]
  3. PREMPRO [Concomitant]

REACTIONS (5)
  - ABDOMINAL PAIN [None]
  - ABDOMINAL PAIN UPPER [None]
  - CONSTIPATION [None]
  - FAECALOMA [None]
  - RECTAL HAEMORRHAGE [None]
